FAERS Safety Report 4568596-7 (Version None)
Quarter: 2005Q1

REPORT INFORMATION
  Report Type: 
  Country: None (occurrence: None)
  Receive Date: 20050202
  Receipt Date: 20050106
  Transmission Date: 20050727
  Serious: Yes (Hospitalization)
  Sender: FDA-Public Use
  Company Number: US-ABBOTT-05P-163-0285497-00

PATIENT
  Sex: Female
  Weight: 77.18 kg

DRUGS (4)
  1. OMNICEF [Suspect]
     Indication: UPPER RESPIRATORY TRACT INFECTION
     Route: 048
     Dates: start: 20041224, end: 20041228
  2. BISELECT [Concomitant]
     Indication: BLOOD PRESSURE INCREASED
  3. GLIMEPIRIDE [Concomitant]
     Indication: DIABETES MELLITUS
  4. METFORMIN HCL [Concomitant]
     Indication: DIABETES MELLITUS

REACTIONS (2)
  - DIARRHOEA [None]
  - MUSCLE SPASMS [None]
